FAERS Safety Report 23243235 (Version 2)
Quarter: 2024Q2

REPORT INFORMATION
  Report Type: Report from Study
  Country: CA (occurrence: CA)
  Receive Date: 20231130
  Receipt Date: 20240511
  Transmission Date: 20240716
  Serious: Yes (Other)
  Sender: FDA-Public Use
  Company Number: CA-AstraZeneca-CH-00514714A

PATIENT
  Sex: Female

DRUGS (2)
  1. SOLIRIS [Suspect]
     Active Substance: ECULIZUMAB
     Indication: C3 glomerulopathy
     Dosage: 900 MILLIGRAM, QW
     Route: 042
     Dates: start: 20220411, end: 2022
  2. SOLIRIS [Suspect]
     Active Substance: ECULIZUMAB
     Indication: Off label use
     Dosage: 1200 MILLIGRAM, Q2W
     Route: 042
     Dates: start: 20220509, end: 20230717

REACTIONS (3)
  - C3 glomerulopathy [Unknown]
  - Condition aggravated [Unknown]
  - Off label use [Unknown]
